FAERS Safety Report 9458493 (Version 1)
Quarter: 2013Q3

REPORT INFORMATION
  Report Type: Spontaneous
  Country: US (occurrence: US)
  Receive Date: 20130814
  Receipt Date: 20130814
  Transmission Date: 20140515
  Serious: Yes (Other)
  Sender: FDA-Public Use
  Company Number: US-SANOFI-AVENTIS-2013SA028540

PATIENT
  Age: 48 Year
  Sex: Female

DRUGS (7)
  1. AMBIEN [Suspect]
     Indication: PRODUCT USED FOR UNKNOWN INDICATION
     Route: 048
  2. MIDRIN [Concomitant]
     Indication: MIGRAINE
     Dosage: TAKE 2 CAPSULES @ ONSET THEN 1 CAPSULE EVERY HOUR X3 NO MORE THAN 5/DAY
  3. NOVOLOG [Concomitant]
     Indication: TYPE 2 DIABETES MELLITUS
     Dates: start: 20120626
  4. PHENERGAN [Concomitant]
     Indication: NAUSEA
     Dates: start: 20120628
  5. BACLOFEN [Concomitant]
     Indication: MULTIPLE SCLEROSIS
     Dates: start: 20121031
  6. SEROQUEL [Concomitant]
     Indication: INSOMNIA
  7. WELLBUTRIN [Concomitant]
     Indication: DEPRESSION
     Dates: start: 20061211

REACTIONS (1)
  - Anaphylactic reaction [Unknown]
